FAERS Safety Report 8943483 (Version 1)
Quarter: 2012Q4

REPORT INFORMATION
  Report Type: 
  Country: US (occurrence: US)
  Receive Date: 20121203
  Receipt Date: 20121203
  Transmission Date: 20130627
  Serious: Yes (Disabling, Other)
  Sender: FDA-Public Use
  Company Number: PHHY2012US109792

PATIENT
  Age: 68 Year
  Sex: Female

DRUGS (6)
  1. LEVOFLOXACIN [Suspect]
  2. ATENOLOL [Concomitant]
  3. AMLODIPINE BESYLATE [Concomitant]
  4. RABEPRAZOLE SODIUM [Concomitant]
  5. DIPHENHYDRAMINE HYDROCHLORIDE [Concomitant]
  6. ASPIRIN [Concomitant]

REACTIONS (10)
  - Blindness transient [Recovering/Resolving]
  - Uveitis [Recovering/Resolving]
  - Visual acuity reduced [Recovered/Resolved]
  - Vitreous floaters [Recovering/Resolving]
  - Vision blurred [Recovering/Resolving]
  - Retinal disorder [Recovering/Resolving]
  - Corneal deposits [Recovering/Resolving]
  - Macule [Unknown]
  - Rash pustular [Unknown]
  - Anxiety [Unknown]
